FAERS Safety Report 9919311 (Version 1)
Quarter: 2014Q1

REPORT INFORMATION
  Report Type: Spontaneous
  Country: US (occurrence: US)
  Receive Date: 20140224
  Receipt Date: 20140224
  Transmission Date: 20141002
  Serious: No
  Sender: FDA-Public Use
  Company Number: US-009507513-1402USA007575

PATIENT
  Age: 35 Year
  Sex: Female

DRUGS (1)
  1. DECADRON [Suspect]
     Indication: THROAT TIGHTNESS
     Dosage: UNK

REACTIONS (3)
  - Urticaria [Unknown]
  - Pruritus [Unknown]
  - Drug ineffective [Unknown]
